FAERS Safety Report 16008212 (Version 2)
Quarter: 2019Q1

REPORT INFORMATION
  Report Type: Spontaneous
  Country: ES (occurrence: ES)
  Receive Date: 20190225
  Receipt Date: 20190330
  Transmission Date: 20190418
  Serious: Yes (Other)
  Sender: FDA-Public Use
  Company Number: ES-B.I. PHARMACEUTICALS,INC./RIDGEFIELD-2019-12-000580

PATIENT
  Age: 77 Year
  Sex: Male
  Weight: 92.5 kg

DRUGS (2)
  1. JANUVIA [Concomitant]
     Active Substance: SITAGLIPTIN PHOSPHATE
     Indication: DIABETES MELLITUS
     Dosage: 1 COMPRIMIDO CADA DIA
     Route: 048
     Dates: start: 20140915
  2. JARDIANCE [Suspect]
     Active Substance: EMPAGLIFLOZIN
     Indication: DIABETES MELLITUS
     Dosage: 1 COMPRIMIDO CADA DIA
     Route: 048
     Dates: start: 20171019, end: 20190322

REACTIONS (4)
  - Subcutaneous abscess [Not Recovered/Not Resolved]
  - Urinary tract infection [Recovering/Resolving]
  - Urinary tract infection bacterial [Recovering/Resolving]
  - Orchitis [Recovered/Resolved]

NARRATIVE: CASE EVENT DATE: 20181117
